FAERS Safety Report 8539375 (Version 5)
Quarter: 2013Q2

REPORT INFORMATION
  Report Type: Report from Study
  Country: CA (occurrence: CA)
  Receive Date: 20120501
  Receipt Date: 20130611
  Transmission Date: 20140414
  Serious: Yes (Hospitalization)
  Sender: FDA-Public Use
  Company Number: CA-ROCHE-1061904

PATIENT
  Age: 64 Year
  Sex: Female
  Weight: 56.7 kg

DRUGS (3)
  1. VEMURAFENIB [Suspect]
     Indication: MALIGNANT MELANOMA
     Dosage: DATE OF LAST DOSE PRIOR TO EVENT: 09/APR/2012
     Route: 048
     Dates: start: 20110908
  2. STEMETIL [Concomitant]
     Route: 065
     Dates: start: 20111102
  3. RETIN A CREAM [Concomitant]
     Dosage: 0.05% CREAM PRN / %
     Route: 065
     Dates: start: 20111006

REACTIONS (1)
  - Atrial fibrillation [Recovered/Resolved]
